FAERS Safety Report 7893142-X (Version None)
Quarter: 2011Q4

REPORT INFORMATION
  Report Type: 
  Country: None (occurrence: None)
  Receive Date: 20111104
  Receipt Date: 20111101
  Transmission Date: 20120403
  Serious: Yes (Hospitalization)
  Sender: FDA-Public Use
  Company Number: JP-EISAI INC-E2020-09926-SPO-JP

PATIENT
  Age: 75 Year
  Sex: Male
  Weight: 54 kg

DRUGS (4)
  1. EXELON [Suspect]
     Indication: DEMENTIA ALZHEIMER'S TYPE
     Route: 062
     Dates: start: 20110915, end: 20110929
  2. ARICEPT [Suspect]
     Route: 048
     Dates: start: 20110728, end: 20110914
  3. EXELON [Suspect]
     Route: 062
     Dates: start: 20110930, end: 20111028
  4. ARICEPT [Suspect]
     Indication: DEMENTIA ALZHEIMER'S TYPE
     Route: 048
     Dates: end: 20110727

REACTIONS (2)
  - PNEUMONIA ASPIRATION [None]
  - VOMITING [None]
